FAERS Safety Report 8816238 (Version 2)
Quarter: 2013Q2

REPORT INFORMATION
  Report Type: Report from Study
  Country: JP (occurrence: JP)
  Receive Date: 20120930
  Receipt Date: 20130624
  Transmission Date: 20140414
  Serious: Yes (Hospitalization)
  Sender: FDA-Public Use
  Company Number: JP-009507513-1209JPN011170

PATIENT
  Age: 38 Year
  Sex: Male
  Weight: 134 kg

DRUGS (7)
  1. PEGINTRON [Suspect]
     Indication: CHRONIC HEPATITIS C
     Dosage: 1.5 MICROGRAM PER KILOGRAM, QW
     Route: 058
     Dates: start: 20120305, end: 20120813
  2. REBETOL [Suspect]
     Indication: CHRONIC HEPATITIS C
     Dosage: 1000 MG, QD
     Route: 048
     Dates: start: 20120305, end: 20120813
  3. TELAVIC [Suspect]
     Indication: CHRONIC HEPATITIS C
     Dosage: 2250 MG, QD
     Route: 048
     Dates: start: 20120305, end: 20120528
  4. GASTER D [Concomitant]
     Indication: GASTRITIS
     Dosage: 20 MG, QD, FORMULATION: POR
     Route: 048
  5. MUCOSOLVAN [Concomitant]
     Indication: GASTRITIS
     Dosage: 45 MG, QD, FORMULATION: POR
     Route: 048
     Dates: start: 20120604
  6. ZYLORIC [Concomitant]
     Indication: HYPERURICAEMIA
     Dosage: 100 MG, QD, FORMULATION: POR
     Route: 048
  7. CALONAL [Concomitant]
     Indication: PROPHYLAXIS
     Dosage: 400 MG, QD
     Route: 048
     Dates: start: 20120507, end: 20120514

REACTIONS (1)
  - Portal vein thrombosis [Recovering/Resolving]
